APPROVED DRUG PRODUCT: AMPICILLIN SODIUM
Active Ingredient: AMPICILLIN SODIUM
Strength: EQ 2GM BASE/VIAL
Dosage Form/Route: INJECTABLE;INJECTION
Application: A062797 | Product #002 | TE Code: AP
Applicant: ISTITUTO BIOCHIMICO ITALIANO SPA
Approved: Jul 12, 1993 | RLD: No | RS: No | Type: RX